FAERS Safety Report 22651167 (Version 1)
Quarter: 2023Q2

REPORT INFORMATION
  Report Type: Spontaneous
  Country: US (occurrence: None)
  Receive Date: 20230627
  Receipt Date: 20230627
  Transmission Date: 20230722
  Serious: Yes (Life-Threatening, Hospitalization, Disabling)
  Sender: FDA-Public Use
  Company Number: None

PATIENT
  Age: 47 Year
  Sex: 0
  Weight: 90 kg

DRUGS (1)
  1. OZEMPIC [Suspect]
     Active Substance: SEMAGLUTIDE
     Indication: Type 2 diabetes mellitus
     Dosage: OTHER FREQUENCY : WEEKLY;?
     Route: 058

REACTIONS (5)
  - Scrotal swelling [None]
  - Swelling [None]
  - Pancreatitis [None]
  - Acute kidney injury [None]
  - Angioedema [None]

NARRATIVE: CASE EVENT DATE: 20230130
